FAERS Safety Report 13647940 (Version 2)
Quarter: 2017Q3

REPORT INFORMATION
  Report Type: Report from Study
  Country: US (occurrence: US)
  Receive Date: 20170613
  Receipt Date: 20170713
  Transmission Date: 20171127
  Serious: Yes (Hospitalization)
  Sender: FDA-Public Use
  Company Number: US-SA-2016SA231204

PATIENT
  Age: 36 Year
  Sex: Male
  Weight: 43 kg

DRUGS (2)
  1. ISONIAZID. [Suspect]
     Active Substance: ISONIAZID
     Indication: PULMONARY TUBERCULOSIS
     Route: 065
     Dates: start: 20160930, end: 20170126
  2. RIFAPENTINE [Suspect]
     Active Substance: RIFAPENTINE
     Indication: PULMONARY TUBERCULOSIS
     Route: 065
     Dates: start: 20160930, end: 20170126

REACTIONS (4)
  - Haemoptysis [Unknown]
  - Hepatitis C [Recovered/Resolved]
  - Rash [Recovered/Resolved]
  - Jaundice [Recovered/Resolved]

NARRATIVE: CASE EVENT DATE: 20161004
